FAERS Safety Report 4492146-7 (Version None)
Quarter: 2004Q3

REPORT INFORMATION
  Report Type: 
  Country: None (occurrence: None)
  Receive Date: 20040923
  Receipt Date: 20040712
  Transmission Date: 20050211
  Serious: No
  Sender: FDA-Public Use
  Company Number: 04P-163-0266284-00

PATIENT
  Age: 59 Year
  Sex: Male

DRUGS (2)
  1. TRICOR [Suspect]
     Indication: HYPERLIPIDAEMIA
     Dosage: 160 MG, 1 IN 1 D, PER ORAL
     Route: 048
     Dates: start: 20040511, end: 20040618
  2. DYAZIDE [Concomitant]

REACTIONS (3)
  - BACK PAIN [None]
  - BLOOD CREATININE INCREASED [None]
  - OEDEMA [None]
